FAERS Safety Report 8988124 (Version 1)
Quarter: 2012Q4

REPORT INFORMATION
  Report Type: 
  Country: GB (occurrence: GB)
  Receive Date: 20121227
  Receipt Date: 20121227
  Transmission Date: 20130627
  Serious: Yes (Life-Threatening, Hospitalization)
  Sender: FDA-Public Use
  Company Number: GB-ASTRAZENECA-2012SE95426

PATIENT
  Age: 29585 Day
  Sex: Male
  Weight: 80 kg

DRUGS (5)
  1. OMEPRAZOLE [Suspect]
     Indication: UPPER GASTROINTESTINAL HAEMORRHAGE
     Route: 048
     Dates: start: 20120824, end: 20121118
  2. OMEPRAZOLE [Suspect]
     Indication: UPPER GASTROINTESTINAL HAEMORRHAGE
     Route: 048
     Dates: start: 20121119, end: 20121123
  3. BISOPROLOL [Concomitant]
     Indication: HYPERTENSION
     Route: 048
  4. CLOPIDOGREL [Concomitant]
     Indication: TRANSIENT ISCHAEMIC ATTACK
     Route: 048
  5. METHYLDOPA [Concomitant]
     Indication: HYPERTENSION
     Route: 048
     Dates: start: 20120801

REACTIONS (1)
  - Renal failure acute [Recovering/Resolving]
